FAERS Safety Report 10056123 (Version 1)
Quarter: 2014Q2

REPORT INFORMATION
  Report Type: Spontaneous
  Country: US (occurrence: None)
  Receive Date: 20140401
  Receipt Date: 20140401
  Transmission Date: 20141212
  Serious: Yes (Disabling, Other)
  Sender: FDA-Public Use
  Company Number: 201403072

PATIENT
  Age: 64 Year
  Sex: Male

DRUGS (1)
  1. TESTIM [Suspect]
     Indication: ANDROGEN THERAPY
     Dates: start: 201110

REACTIONS (9)
  - Hyperviscosity syndrome [None]
  - Polycythaemia [None]
  - Cognitive disorder [None]
  - Anhedonia [None]
  - Fear [None]
  - Economic problem [None]
  - Deafness [None]
  - Sexual relationship change [None]
  - Cerebrovascular accident [None]
